FAERS Safety Report 6755747-9 (Version None)
Quarter: 2010Q2

REPORT INFORMATION
  Report Type: 
  Country: None (occurrence: None)
  Receive Date: 20100604
  Receipt Date: 20100526
  Transmission Date: 20101027
  Serious: Yes (Other)
  Sender: FDA-Public Use
  Company Number: DE-PFIZER INC-2010060804

PATIENT
  Age: 25 Year
  Sex: Female

DRUGS (2)
  1. SAYANA [Suspect]
     Indication: CONTRACEPTION
     Dosage: 1 DF, EVERY 3 MONTHS
     Route: 058
     Dates: start: 20100126
  2. VIGIL [Concomitant]
     Indication: NARCOLEPSY
     Dosage: UNK
     Dates: start: 20071201

REACTIONS (1)
  - INJECTION SITE ABSCESS [None]
